FAERS Safety Report 23875362 (Version 1)
Quarter: 2024Q2

REPORT INFORMATION
  Report Type: Spontaneous
  Country: JP (occurrence: JP)
  Receive Date: 20240520
  Receipt Date: 20240520
  Transmission Date: 20240716
  Serious: Yes (Death, Other)
  Sender: FDA-Public Use
  Company Number: JP-ABBVIE-5767396

PATIENT

DRUGS (1)
  1. VENCLEXTA [Suspect]
     Active Substance: VENETOCLAX
     Indication: Acute myeloid leukaemia
     Dosage: FORM STRENGTH: 100 MILLIGRAMS
     Route: 048

REACTIONS (7)
  - Death [Fatal]
  - Bone marrow failure [Unknown]
  - Acute myeloid leukaemia [Unknown]
  - Platelet count decreased [Unknown]
  - Acute myeloid leukaemia recurrent [Unknown]
  - Anaemia [Unknown]
  - Drug intolerance [Unknown]
